FAERS Safety Report 9880496 (Version 2)
Quarter: 2014Q2

REPORT INFORMATION
  Report Type: Spontaneous
  Country: DE (occurrence: DE)
  Receive Date: 20140207
  Receipt Date: 20140424
  Transmission Date: 20141212
  Serious: Yes (Hospitalization, Other)
  Sender: FDA-Public Use
  Company Number: DE-JNJFOC-20140202417

PATIENT
  Age: 62 Year
  Sex: Male
  Weight: 64.85 kg

DRUGS (7)
  1. XARELTO [Suspect]
     Indication: CEREBROVASCULAR ACCIDENT PROPHYLAXIS
     Route: 048
     Dates: start: 2012
  2. XARELTO [Suspect]
     Indication: ATRIAL FIBRILLATION
     Route: 048
     Dates: start: 2012
  3. XARELTO [Suspect]
     Indication: CARDIOMYOPATHY
     Route: 048
     Dates: start: 2012
  4. TOREM [Concomitant]
     Route: 065
  5. METOPROLOL SUCCINATE [Concomitant]
     Route: 065
  6. DIGITOXIN [Concomitant]
     Route: 065
  7. L THYROXIN [Concomitant]
     Route: 065

REACTIONS (1)
  - Hepatic failure [Recovered/Resolved]
